FAERS Safety Report 10283000 (Version 2)
Quarter: 2014Q3

REPORT INFORMATION
  Report Type: Spontaneous
  Country: JP (occurrence: JP)
  Receive Date: 20140708
  Receipt Date: 20140911
  Transmission Date: 20150326
  Serious: Yes (Hospitalization)
  Sender: FDA-Public Use
  Company Number: JP-ROCHE-1430764

PATIENT
  Age: 62 Year
  Sex: Female
  Weight: 45 kg

DRUGS (13)
  1. HALFDIGOXIN KY [Concomitant]
     Route: 048
  2. THYRADIN-S [Concomitant]
     Active Substance: LEVOTHYROXINE
     Indication: FOLLICULAR THYROID CANCER
     Route: 048
     Dates: start: 201401
  3. ELIQUIS [Concomitant]
     Active Substance: APIXABAN
     Route: 048
  4. ACTEMRA [Suspect]
     Active Substance: TOCILIZUMAB
     Indication: RHEUMATOID ARTHRITIS
     Route: 041
     Dates: start: 20140217
  5. DEPAKENE [Concomitant]
     Active Substance: VALPROIC ACID
     Route: 048
  6. METOLATE [Suspect]
     Active Substance: METHOTREXATE
     Indication: RHEUMATOID ARTHRITIS
     Route: 048
     Dates: end: 20140616
  7. FOLIAMIN [Concomitant]
     Active Substance: FOLIC ACID
     Indication: PROPHYLAXIS
     Route: 065
     Dates: end: 20140616
  8. SUNRYTHM [Concomitant]
     Active Substance: PILSICAINIDE HYDROCHLORIDE
     Route: 048
  9. VASOLAN [Concomitant]
     Active Substance: VERAPAMIL HYDROCHLORIDE
     Route: 048
  10. TRAMCET [Concomitant]
     Active Substance: ACETAMINOPHEN\TRAMADOL
     Indication: RHEUMATOID ARTHRITIS
     Route: 048
     Dates: start: 20140303
  11. NU-LOTAN [Concomitant]
     Active Substance: LOSARTAN POTASSIUM
     Route: 048
  12. AMOBAN [Concomitant]
     Active Substance: ZOPICLONE
     Route: 048
  13. TAKEPRON [Concomitant]
     Active Substance: LANSOPRAZOLE
     Route: 048

REACTIONS (1)
  - Interstitial lung disease [Recovered/Resolved]

NARRATIVE: CASE EVENT DATE: 20140616
